FAERS Safety Report 26074209 (Version 1)
Quarter: 2025Q4

REPORT INFORMATION
  Report Type: Spontaneous
  Country: EU (occurrence: EU)
  Receive Date: 20251121
  Receipt Date: 20251121
  Transmission Date: 20260118
  Serious: Yes (Hospitalization)
  Sender: ACCORD
  Company Number: None

PATIENT
  Age: 76 Year
  Sex: Male

DRUGS (3)
  1. FLUOROURACIL [Suspect]
     Active Substance: FLUOROURACIL
     Indication: Product used for unknown indication
     Dosage: STRENGTH: 50 MG/ML SOLUTION FOR INJECTION/INFUSION EFG, 1 VIAL OF 10 ML
     Dates: start: 20241231
  2. IRINOTECAN [Suspect]
     Active Substance: IRINOTECAN
     Indication: Product used for unknown indication
     Dosage: STRENGTH: 20 MG/ML, CONCENTRATE FOR SOLUTION FOR INFUSION EFG, 1 VIAL OF 15 ML
     Dates: start: 20241231
  3. AVASTIN [Concomitant]
     Active Substance: BEVACIZUMAB
     Dosage: STRENGTH: 25 MG/ML, 1 VIAL OF 16 ML
     Dates: start: 20241231

REACTIONS (1)
  - Colitis [Recovered/Resolved]

NARRATIVE: CASE EVENT DATE: 20250126
